FAERS Safety Report 7633511-6 (Version None)
Quarter: 2011Q3

REPORT INFORMATION
  Report Type: 
  Country: None (occurrence: None)
  Receive Date: 20110725
  Receipt Date: 20110720
  Transmission Date: 20111222
  Serious: Yes (Other)
  Sender: FDA-Public Use
  Company Number: US-ELI_LILLY_AND_COMPANY-US200910005556

PATIENT
  Sex: Male

DRUGS (29)
  1. BYETTA [Suspect]
     Dosage: UNK, UNKNOWN
     Dates: start: 20070410
  2. JANUVIA [Concomitant]
     Indication: DIABETES MELLITUS
     Dosage: 100 MG, QD
  3. NIASPAN [Concomitant]
     Dosage: 1000 MG, EACH EVENING
  4. NOVOLOG [Concomitant]
  5. POTASSIUM CHLORIDE [Concomitant]
     Dosage: 10 MEQ, QD
  6. ROZEREM [Concomitant]
     Dosage: 8 MG, UNKNOWN
  7. SIMVASTATIN [Concomitant]
     Indication: HYPERCHOLESTEROLAEMIA
     Dosage: UNK
     Dates: start: 20060101
  8. PLAVIX [Concomitant]
     Dosage: 75 MG, QD
     Route: 048
  9. METOPROLOL TARTRATE [Concomitant]
     Dosage: 100 MG, UNKNOWN
  10. NITROGLYCERIN [Concomitant]
     Dosage: 1 DF, PRN
     Route: 060
  11. TOPROL-XL [Concomitant]
     Dosage: 50 DF, BID
  12. ISOSORBIDE MONONITRATE [Concomitant]
     Dosage: 30 MG, TID
  13. REGLAN [Concomitant]
     Dosage: 10 MG, UNKNOWN
  14. FELODIPINE [Concomitant]
     Dosage: 10 MG, UNKNOWN
  15. BYETTA [Suspect]
     Dosage: 10 UG, BID
     Route: 065
     Dates: end: 20081201
  16. PREVACID [Concomitant]
     Dosage: 30 MG, UNKNOWN
     Dates: start: 20020101
  17. METAGLIP [Concomitant]
     Dosage: 500 DF, BID
  18. CYMBALTA [Concomitant]
     Dosage: 60 MG, BID
  19. LYRICA [Concomitant]
     Dosage: 100 MG, UNKNOWN
  20. OXYCODONE HCL AND ACETAMINOPHEN [Concomitant]
     Dosage: 30 MG, EVERY 4 HRS
     Route: 048
  21. AVANDIA [Concomitant]
     Dosage: 8 MG, QD
     Route: 048
  22. LASIX [Concomitant]
     Dosage: 40 MG, QD
  23. RINOCORT [Concomitant]
     Dosage: 1 DF, QD
  24. LANTUS [Concomitant]
     Dosage: 90 U, EACH EVENING
  25. TYLENOL (CAPLET) [Concomitant]
     Route: 048
  26. VYTORIN [Concomitant]
     Dosage: 1 DF, QD
  27. ENALAPRIL MALEATE [Concomitant]
     Dosage: 20 DF, QD
  28. TIZANIDINE HCL [Concomitant]
     Dosage: 4 MG, UNKNOWN
  29. SPIRIVA [Concomitant]

REACTIONS (2)
  - OFF LABEL USE [None]
  - PANCREATITIS ACUTE [None]
